FAERS Safety Report 4825182-9 (Version None)
Quarter: 2005Q4

REPORT INFORMATION
  Report Type: 
  Country: None (occurrence: None)
  Receive Date: 20051109
  Receipt Date: 20051026
  Transmission Date: 20060501
  Serious: Yes (Hospitalization)
  Sender: FDA-Public Use
  Company Number: PHBS2005US15930

PATIENT
  Age: 38 Year
  Sex: Female

DRUGS (3)
  1. CLOZAPINE [Suspect]
     Indication: SCHIZOAFFECTIVE DISORDER
     Dosage: 500 MG/D,
  2. OLANZAPINE [Suspect]
     Indication: SCHIZOAFFECTIVE DISORDER
     Dosage: 30 MG/D,
  3. PAROXETINE HCL [Suspect]
     Indication: SCHIZOAFFECTIVE DISORDER
     Dosage: 40 MG/D,

REACTIONS (12)
  - AGGRESSION [None]
  - COMPLEX PARTIAL SEIZURES [None]
  - DEPRESSED LEVEL OF CONSCIOUSNESS [None]
  - DRUG INTERACTION [None]
  - DRUG LEVEL INCREASED [None]
  - DYSARTHRIA [None]
  - ELECTROENCEPHALOGRAM ABNORMAL [None]
  - ENCEPHALOPATHY [None]
  - HYPOKINESIA [None]
  - SALIVARY HYPERSECRETION [None]
  - SINUS TACHYCARDIA [None]
  - SOMNOLENCE [None]
